FAERS Safety Report 18765814 (Version 4)
Quarter: 2022Q1

REPORT INFORMATION
  Report Type: Other
  Country: JP (occurrence: JP)
  Receive Date: 20210121
  Receipt Date: 20220311
  Transmission Date: 20220424
  Serious: Yes (Other)
  Sender: FDA-Public Use
  Company Number: JP-CHUGAI-A2020055918ROCHE

PATIENT
  Age: 28 Year
  Sex: Male
  Weight: 61 kg

DRUGS (34)
  1. MYCOPHENOLATE MOFETIL [Suspect]
     Active Substance: MYCOPHENOLATE MOFETIL
     Indication: Prophylaxis against transplant rejection
     Route: 048
     Dates: start: 20191106, end: 20191111
  2. MYCOPHENOLATE MOFETIL [Suspect]
     Active Substance: MYCOPHENOLATE MOFETIL
     Route: 048
     Dates: start: 20191113, end: 20191114
  3. MYCOPHENOLATE MOFETIL [Suspect]
     Active Substance: MYCOPHENOLATE MOFETIL
     Route: 048
     Dates: start: 20191115, end: 20191204
  4. MYCOPHENOLATE MOFETIL [Suspect]
     Active Substance: MYCOPHENOLATE MOFETIL
     Route: 048
     Dates: start: 20191205, end: 20191210
  5. MYCOPHENOLATE MOFETIL [Suspect]
     Active Substance: MYCOPHENOLATE MOFETIL
     Route: 048
     Dates: start: 20191211, end: 20191215
  6. MYCOPHENOLATE MOFETIL [Suspect]
     Active Substance: MYCOPHENOLATE MOFETIL
     Route: 048
     Dates: start: 20191216, end: 20191219
  7. MYCOPHENOLATE MOFETIL [Suspect]
     Active Substance: MYCOPHENOLATE MOFETIL
     Route: 048
     Dates: start: 20200111, end: 20200120
  8. MYCOPHENOLATE MOFETIL [Suspect]
     Active Substance: MYCOPHENOLATE MOFETIL
     Route: 048
     Dates: start: 20200121, end: 20200205
  9. MYCOPHENOLATE MOFETIL [Suspect]
     Active Substance: MYCOPHENOLATE MOFETIL
     Route: 048
     Dates: start: 20200206
  10. RITUXIMAB [Suspect]
     Active Substance: RITUXIMAB
     Indication: Prophylaxis against transplant rejection
     Dosage: DATE OF MOST RECENT DOSE OF RITUXIMAB: 15/OCT/2019
     Route: 065
     Dates: start: 20191015
  11. TACROLIMUS [Suspect]
     Active Substance: TACROLIMUS
     Indication: Prophylaxis against transplant rejection
     Route: 048
     Dates: start: 20191106, end: 20191111
  12. TACROLIMUS [Suspect]
     Active Substance: TACROLIMUS
     Route: 048
     Dates: start: 20191113
  13. TACROLIMUS [Suspect]
     Active Substance: TACROLIMUS
     Dosage: ORAL DRUG UNSPECIFIED FORM?DOSAGE IS UNCERTAIN.?MOST RECENT DOSE RECEIVED ON 13/OCT/2020
     Route: 048
     Dates: start: 20200721
  14. TACROLIMUS [Suspect]
     Active Substance: TACROLIMUS
     Dosage: ORAL DRUG UNSPECIFIED FORM?DOSAGE IS UNCERTAIN.?MOST RECENT DOSE RECEIVED ON 13/OCT/2020
     Route: 048
     Dates: start: 20200428, end: 20201013
  15. TACROLIMUS [Suspect]
     Active Substance: TACROLIMUS
     Dosage: ORAL DRUG UNSPECIFIED FORM?DOSAGE IS UNCERTAIN.
     Route: 048
  16. SOLU-MEDROL [Suspect]
     Active Substance: METHYLPREDNISOLONE SODIUM SUCCINATE
     Indication: Prophylaxis against transplant rejection
     Route: 042
     Dates: start: 20191113, end: 20191115
  17. SOLU-MEDROL [Suspect]
     Active Substance: METHYLPREDNISOLONE SODIUM SUCCINATE
     Route: 042
     Dates: start: 20191116, end: 20191118
  18. SOLU-MEDROL [Suspect]
     Active Substance: METHYLPREDNISOLONE SODIUM SUCCINATE
     Route: 042
     Dates: start: 20191119, end: 20191119
  19. SOLU-MEDROL [Suspect]
     Active Substance: METHYLPREDNISOLONE SODIUM SUCCINATE
     Route: 042
     Dates: start: 20191204, end: 20191207
  20. SOLU-MEDROL [Suspect]
     Active Substance: METHYLPREDNISOLONE SODIUM SUCCINATE
     Route: 042
     Dates: start: 20191208, end: 20191208
  21. SOLU-MEDROL [Suspect]
     Active Substance: METHYLPREDNISOLONE SODIUM SUCCINATE
     Route: 042
     Dates: start: 20191209, end: 20191209
  22. SOLU-MEDROL [Suspect]
     Active Substance: METHYLPREDNISOLONE SODIUM SUCCINATE
     Dosage: DATE OF MOST RECENT DOSE OF METHYLPREDNISOLONE SODIUM SUCCINATE: 10/DEC/2019
     Route: 042
     Dates: start: 20191210, end: 20191210
  23. PREDONINE [Suspect]
     Active Substance: PREDNISOLONE
     Indication: Prophylaxis against transplant rejection
     Route: 048
     Dates: start: 20191120, end: 20191129
  24. PREDONINE [Suspect]
     Active Substance: PREDNISOLONE
     Route: 048
     Dates: start: 20191120, end: 20200118
  25. PREDONINE [Suspect]
     Active Substance: PREDNISOLONE
     Dosage: DATE OF MOST RECENT DOSE OF PREDNISOLONE: 14/FEB/2020
     Route: 048
     Dates: start: 20200119
  26. PREDONINE [Suspect]
     Active Substance: PREDNISOLONE
     Route: 048
     Dates: start: 20201008, end: 20210324
  27. PREDONINE [Suspect]
     Active Substance: PREDNISOLONE
     Route: 048
     Dates: start: 20210325
  28. EVEROLIMUS [Concomitant]
     Active Substance: EVEROLIMUS
     Indication: Prophylaxis against transplant rejection
     Route: 048
     Dates: start: 20191217
  29. EVEROLIMUS [Concomitant]
     Active Substance: EVEROLIMUS
     Route: 048
     Dates: start: 20200111, end: 20200214
  30. EVEROLIMUS [Concomitant]
     Active Substance: EVEROLIMUS
     Route: 048
     Dates: start: 20200215, end: 20200219
  31. EVEROLIMUS [Concomitant]
     Active Substance: EVEROLIMUS
     Route: 048
     Dates: start: 20200220, end: 20200318
  32. EVEROLIMUS [Concomitant]
     Active Substance: EVEROLIMUS
     Route: 048
     Dates: start: 20200319, end: 20200428
  33. MICAFUNGIN SODIUM [Concomitant]
     Active Substance: MICAFUNGIN SODIUM
     Indication: Infection prophylaxis
     Route: 042
     Dates: start: 20191113, end: 20191119
  34. SULFAMETHOXAZOLE\TRIMETHOPRIM [Concomitant]
     Active Substance: SULFAMETHOXAZOLE\TRIMETHOPRIM
     Indication: Infection prophylaxis
     Route: 048
     Dates: start: 20191121, end: 20200225

REACTIONS (6)
  - Cytomegalovirus infection [Recovered/Resolved]
  - Abdominal abscess [Recovered/Resolved]
  - Rectal haemorrhage [Recovered/Resolved]
  - Liver transplant rejection [Recovered/Resolved]
  - Cholangitis infective [Recovering/Resolving]
  - Renal failure [Not Recovered/Not Resolved]

NARRATIVE: CASE EVENT DATE: 20191116
